FAERS Safety Report 13344538 (Version 2)
Quarter: 2017Q1

REPORT INFORMATION
  Report Type: Report from Study
  Country: CA (occurrence: CA)
  Receive Date: 20170317
  Receipt Date: 20170321
  Transmission Date: 20170428
  Serious: Yes (Other)
  Sender: FDA-Public Use
  Company Number: CA-ADIENNEP-2016AD000302

PATIENT

DRUGS (2)
  1. THIOTEPA. [Suspect]
     Active Substance: THIOTEPA
     Indication: MEDULLOBLASTOMA
     Dosage: 10 MG/KG DAILY
     Route: 042
  2. CARBOPLATIN. [Suspect]
     Active Substance: CARBOPLATIN
     Indication: MEDULLOBLASTOMA
     Dosage: 17 MG/KG DAILY
     Route: 042

REACTIONS (1)
  - Neuropathy peripheral [Unknown]
